FAERS Safety Report 6241440-8 (Version None)
Quarter: 2009Q2

REPORT INFORMATION
  Report Type: 
  Country: None (occurrence: None)
  Receive Date: 20090623
  Receipt Date: 20090617
  Transmission Date: 20091009
  Serious: Yes (Other)
  Sender: FDA-Public Use
  Company Number: US-JNJFOC-20090606608

PATIENT
  Age: 47 Year
  Sex: Female
  Weight: 65.32 kg

DRUGS (2)
  1. EXTRA STRENGTH TYLENOL [Suspect]
     Route: 048
  2. EXTRA STRENGTH TYLENOL [Suspect]
     Indication: BACK PAIN
     Dosage: 1000-1500 MG TWICE DAILY AS NEEDED
     Route: 048

REACTIONS (2)
  - HEPATIC ENZYME INCREASED [None]
  - INCORRECT DOSE ADMINISTERED [None]
